FAERS Safety Report 4903827-2 (Version None)
Quarter: 2006Q1

REPORT INFORMATION
  Report Type: 
  Country: None (occurrence: None)
  Receive Date: 20060208
  Receipt Date: 20050711
  Transmission Date: 20060701
  Serious: No
  Sender: FDA-Public Use
  Company Number: US-GLAXOSMITHKLINE-A0565751A

PATIENT
  Age: 18 Year
  Sex: Female

DRUGS (4)
  1. PAROXETINE HCL [Suspect]
     Dosage: 10MG TWICE PER DAY
     Route: 048
     Dates: start: 20050501, end: 20050601
  2. CONCERTA [Concomitant]
  3. ABILIFY [Concomitant]
  4. ESTROSTEP [Concomitant]

REACTIONS (2)
  - AGITATION [None]
  - CRYING [None]
